FAERS Safety Report 21644504 (Version 1)
Quarter: 2022Q4

REPORT INFORMATION
  Report Type: Spontaneous
  Country: IT (occurrence: IT)
  Receive Date: 20221125
  Receipt Date: 20221125
  Transmission Date: 20230113
  Serious: Yes (Death, Other)
  Sender: FDA-Public Use
  Company Number: IT-BRISTOL-MYERS SQUIBB COMPANY-2022-143537

PATIENT
  Age: 89 Year
  Sex: Female
  Weight: 68 kg

DRUGS (6)
  1. APIXABAN [Suspect]
     Active Substance: APIXABAN
     Indication: Cerebrovascular accident prophylaxis
     Route: 065
     Dates: start: 20200307
  2. APIXABAN [Suspect]
     Active Substance: APIXABAN
     Route: 048
     Dates: start: 20200717
  3. LANOXIN [Concomitant]
     Active Substance: DIGOXIN
     Indication: Product used for unknown indication
     Dosage: 0.0625, , DAILY DOSE AND REGIMEN: 1 CO
     Route: 065
  4. RIFAXIMIN [Concomitant]
     Active Substance: RIFAXIMIN
     Indication: Product used for unknown indication
     Route: 065
  5. FOLIDAR [Concomitant]
     Indication: Product used for unknown indication
     Route: 065
  6. BISOPROLOL FUMARATE [Concomitant]
     Active Substance: BISOPROLOL FUMARATE
     Indication: Product used for unknown indication
     Route: 065

REACTIONS (1)
  - Death [Fatal]
